FAERS Safety Report 13168882 (Version 1)
Quarter: 2017Q1

REPORT INFORMATION
  Report Type: Spontaneous
  Country: None (occurrence: US)
  Receive Date: 20170131
  Receipt Date: 20170131
  Transmission Date: 20170428
  Serious: No
  Sender: FDA-Public Use
  Company Number: US-TORRENT-00001330

PATIENT
  Sex: Female

DRUGS (4)
  1. ESOMEPRAZOLE MAGNESIUM D/R [Suspect]
     Active Substance: ESOMEPRAZOLE MAGNESIUM
  2. XARELTO [Concomitant]
     Active Substance: RIVAROXABAN
  3. LOSARTAN. [Concomitant]
     Active Substance: LOSARTAN
  4. DIGOXIN. [Concomitant]
     Active Substance: DIGOXIN

REACTIONS (2)
  - Rash [Unknown]
  - Blister [Unknown]
